FAERS Safety Report 5596497-4 (Version None)
Quarter: 2007Q4

REPORT INFORMATION
  Report Type: 
  Country: None (occurrence: None)
  Receive Date: 20071219
  Receipt Date: 20071119
  Transmission Date: 20080405
  Serious: No
  Sender: FDA-Public Use
  Company Number: US-WYE-H01385007

PATIENT
  Age: 78 Year
  Sex: Male

DRUGS (1)
  1. TORISEL [Suspect]
     Indication: RENAL CELL CARCINOMA STAGE UNSPECIFIED
     Dosage: 25MG IN 250ML NSS, INTRAVENOUS
     Route: 042
     Dates: start: 20071119, end: 20071119

REACTIONS (1)
  - INFUSION SITE EXTRAVASATION [None]
